FAERS Safety Report 9926123 (Version 2)
Quarter: 2014Q2

REPORT INFORMATION
  Report Type: Report from Study
  Country: US (occurrence: US)
  Receive Date: 20140226
  Receipt Date: 20140624
  Transmission Date: 20141212
  Serious: Yes (Hospitalization)
  Sender: FDA-Public Use
  Company Number: US-PFIZER INC-2014047787

PATIENT
  Age: 63 Year
  Sex: Male
  Weight: 83.4 kg

DRUGS (14)
  1. DOXORUBICIN HCL [Suspect]
     Indication: SARCOMA
     Dosage: CYCLIC
     Route: 040
     Dates: start: 20120606
  2. DOXORUBICIN HCL [Suspect]
     Dosage: 87 MG (42 MG/M2), CYCLIC, CYCLE 5
     Route: 040
     Dates: start: 20120912, end: 20120912
  3. AMITRIPTYLINE [Concomitant]
     Dosage: UNK
     Dates: start: 20120906
  4. DURAGESIC [Concomitant]
     Dosage: UNK
     Dates: start: 20120830
  5. FERROUS SULFATE [Concomitant]
     Dosage: UNK
     Dates: start: 20120815
  6. NEURONTIN [Concomitant]
     Dosage: UNK
     Dates: start: 20120815
  7. LORAZEPAM [Concomitant]
     Dosage: UNK
     Dates: start: 20120613
  8. MULTIVITAMIN [Concomitant]
     Dosage: UNK
     Dates: start: 20111010
  9. NYSTATIN [Concomitant]
     Dosage: UNK
     Dates: start: 20120711
  10. ZOFRAN [Concomitant]
     Dosage: UNK
     Dates: start: 20120701
  11. OXYCODONE [Concomitant]
     Dosage: UNK
     Dates: start: 20120302
  12. COMPAZINE [Concomitant]
     Dosage: UNK
     Dates: start: 20120718
  13. EFFEXOR [Concomitant]
     Dosage: UNK
     Dates: start: 20120711
  14. LEVAQUIN [Concomitant]
     Dosage: UNK
     Dates: start: 20120912

REACTIONS (1)
  - Pneumonia [Recovered/Resolved]
